FAERS Safety Report 13817646 (Version 4)
Quarter: 2017Q3

REPORT INFORMATION
  Report Type: Spontaneous
  Country: JP (occurrence: JP)
  Receive Date: 20170731
  Receipt Date: 20170815
  Transmission Date: 20171127
  Serious: Yes (Hospitalization, Other)
  Sender: FDA-Public Use
  Company Number: PHJP2017JP024004

PATIENT
  Age: 90 Year
  Sex: Female

DRUGS (1)
  1. DICLOFENAC [Suspect]
     Active Substance: DICLOFENAC
     Indication: BACK PAIN
     Dosage: UNK
     Route: 048

REACTIONS (8)
  - Ascites [Unknown]
  - Small intestinal perforation [Unknown]
  - Inflammation [Unknown]
  - Gastrointestinal wall thickening [Unknown]
  - Peritonitis [Unknown]
  - Small intestine ulcer [Unknown]
  - Decreased appetite [Unknown]
  - Abdominal pain [Unknown]
